FAERS Safety Report 6946135-0 (Version None)
Quarter: 2010Q3

REPORT INFORMATION
  Report Type: 
  Country: None (occurrence: None)
  Receive Date: 20100827
  Receipt Date: 20100727
  Transmission Date: 20110219
  Serious: No
  Sender: FDA-Public Use
  Company Number: US-PFIZER INC-2010094617

PATIENT
  Sex: Female

DRUGS (7)
  1. NEURONTIN [Suspect]
     Dosage: UNK
     Route: 048
  2. LYRICA [Suspect]
     Dosage: UNK
  3. SIMVASTATIN [Suspect]
     Route: 048
  4. DIAZEPAM [Suspect]
     Indication: ANXIETY
     Dosage: 10 MG, UNK
     Route: 048
  5. DIAZEPAM [Suspect]
     Dosage: 2 MG, DAILY
  6. ZYRTEC [Concomitant]
     Dosage: UNK
     Route: 048
  7. SYNTHROID [Concomitant]
     Dosage: UNK
     Route: 048

REACTIONS (1)
  - RASH PRURITIC [None]
